FAERS Safety Report 24643047 (Version 1)
Quarter: 2024Q4

REPORT INFORMATION
  Report Type: Spontaneous
  Country: GR (occurrence: GR)
  Receive Date: 20241120
  Receipt Date: 20241120
  Transmission Date: 20250115
  Serious: Yes (Other)
  Sender: JAZZ
  Company Number: GR-JAZZ PHARMACEUTICALS-2024-GR-018809

PATIENT

DRUGS (1)
  1. VYXEOS [Suspect]
     Active Substance: CYTARABINE\DAUNORUBICIN
     Indication: Acute myeloid leukaemia
     Dosage: UNK

REACTIONS (3)
  - Neutropenia [Unknown]
  - Blast cell count increased [Not Recovered/Not Resolved]
  - Rash pruritic [Recovered/Resolved]
